FAERS Safety Report 8532779-1 (Version None)
Quarter: 2012Q3

REPORT INFORMATION
  Report Type: 
  Country: None (occurrence: None)
  Receive Date: 20120724
  Receipt Date: 20120719
  Transmission Date: 20120928
  Serious: Yes (Hospitalization)
  Sender: FDA-Public Use
  Company Number: PHFR2012GB003967

PATIENT
  Sex: Female
  Weight: 159.6 kg

DRUGS (5)
  1. AMISULPRIDE [Concomitant]
     Dosage: 200 MG, DAILY
     Route: 048
  2. METFORMIN HYDROCHLORIDE [Concomitant]
     Indication: TYPE 2 DIABETES MELLITUS
     Dosage: 1500 MG, DAILY
     Route: 048
  3. PREGABALIN [Concomitant]
     Indication: ANXIETY
     Dosage: 150 MG, DAILY
     Route: 048
  4. CLOZARIL [Suspect]
     Dosage: 275 MG, QD
     Route: 048
  5. CLOZARIL [Suspect]
     Indication: SCHIZOPHRENIA, PARANOID TYPE
     Dosage: 300 MG, DAILY
     Route: 048
     Dates: start: 20070219

REACTIONS (2)
  - NEGATIVE THOUGHTS [None]
  - CELLULITIS [None]
